FAERS Safety Report 4389932-0 (Version None)
Quarter: 2004Q2

REPORT INFORMATION
  Report Type: 
  Country: None (occurrence: None)
  Receive Date: 20040630
  Receipt Date: 20040630
  Transmission Date: 20050107
  Serious: Yes (Other)
  Sender: FDA-Public Use
  Company Number: None

PATIENT
  Age: 40 Year
  Sex: Female
  Weight: 67.1324 kg

DRUGS (4)
  1. METOCLOPRAMIDE [Suspect]
     Indication: DYSPHAGIA
     Dosage: 5 MG BEFORE MEALS
     Dates: start: 20040428
  2. METOCLOPRAMIDE [Suspect]
     Indication: MENTAL RETARDATION SEVERITY UNSPECIFIED
     Dosage: 5 MG BEFORE MEALS
     Dates: start: 20040428
  3. METOCLOPRAMIDE [Suspect]
     Indication: DYSPHAGIA
     Dosage: 5 MG BEFORE MEALS
     Dates: start: 20040528
  4. METOCLOPRAMIDE [Suspect]
     Indication: MENTAL RETARDATION SEVERITY UNSPECIFIED
     Dosage: 5 MG BEFORE MEALS
     Dates: start: 20040528

REACTIONS (2)
  - PHARMACEUTICAL PRODUCT COMPLAINT [None]
  - VOMITING [None]
